FAERS Safety Report 7340738-X (Version None)
Quarter: 2011Q1

REPORT INFORMATION
  Report Type: 
  Country: None (occurrence: None)
  Receive Date: 20110309
  Receipt Date: 20110301
  Transmission Date: 20110831
  Serious: No
  Sender: FDA-Public Use
  Company Number: US-JNJFOC-20110301958

PATIENT
  Sex: Female

DRUGS (3)
  1. RISPERDAL [Suspect]
     Indication: ILL-DEFINED DISORDER
     Route: 048
  2. RISPERDAL [Suspect]
     Route: 048
  3. INVEGA [Suspect]
     Indication: ILL-DEFINED DISORDER
     Route: 048

REACTIONS (1)
  - RASH [None]
